FAERS Safety Report 15774534 (Version 4)
Quarter: 2019Q1

REPORT INFORMATION
  Report Type: Spontaneous
  Country: JP (occurrence: JP)
  Receive Date: 20181229
  Receipt Date: 20190311
  Transmission Date: 20190417
  Serious: Yes (Death, Hospitalization, Other)
  Sender: FDA-Public Use
  Company Number: JP-GLAXOSMITHKLINE-JP2018JPN233036

PATIENT
  Age: 6 Decade
  Sex: Female
  Weight: 80 kg

DRUGS (3)
  1. CALONAL [Concomitant]
     Active Substance: ACETAMINOPHEN
     Dosage: UNK
  2. BENLYSTA [Suspect]
     Active Substance: BELIMUMAB
     Dosage: UNK
     Route: 058
     Dates: start: 201812
  3. MEDICON (DEXTROMETHORPHAN HYDROBROMIDE HYDRATE) [Concomitant]
     Dosage: UNK

REACTIONS (12)
  - Escherichia sepsis [Fatal]
  - Altered state of consciousness [Not Recovered/Not Resolved]
  - Malaise [Unknown]
  - Cardio-respiratory arrest [Recovered/Resolved]
  - Bacteraemia [Fatal]
  - Cerebral ischaemia [Unknown]
  - Blood pressure decreased [Unknown]
  - Shock [Fatal]
  - Pyrexia [Unknown]
  - Septic shock [Fatal]
  - Hypertension [Unknown]
  - Cardiac arrest [Recovered/Resolved]

NARRATIVE: CASE EVENT DATE: 201812
